FAERS Safety Report 5546670-6 (Version None)
Quarter: 2007Q4

REPORT INFORMATION
  Report Type: 
  Country: None (occurrence: None)
  Receive Date: 20071211
  Receipt Date: 20071207
  Transmission Date: 20080405
  Serious: Yes (Other)
  Sender: FDA-Public Use
  Company Number: ES-JNJFOC-20071202063

PATIENT
  Sex: Female

DRUGS (8)
  1. CONCERTA [Suspect]
     Indication: ATTENTION DEFICIT/HYPERACTIVITY DISORDER
     Route: 048
  2. CONCERTA [Suspect]
     Route: 048
  3. QUETIAPINE FUMARATE [Interacting]
     Indication: INSOMNIA
  4. DULOXETINE [Interacting]
     Indication: DEPRESSION
  5. BROMAZEPAM [Interacting]
     Indication: ANXIETY
  6. MIANSERINE [Concomitant]
     Indication: INSOMNIA
  7. METFORMIN HCL [Concomitant]
     Indication: DIABETES MELLITUS
  8. ARMOURTIROID [Concomitant]
     Indication: HYPOTHYROIDISM

REACTIONS (2)
  - DRUG INTERACTION [None]
  - SEDATION [None]
